FAERS Safety Report 24287707 (Version 2)
Quarter: 2024Q4

REPORT INFORMATION
  Report Type: Spontaneous
  Country: JP (occurrence: JP)
  Receive Date: 20240905
  Receipt Date: 20241004
  Transmission Date: 20250115
  Serious: Yes (Hospitalization, Other)
  Sender: ELI LILLY AND CO
  Company Number: JP-ELI_LILLY_AND_COMPANY-JP202408016741

PATIENT
  Age: 74 Year
  Sex: Male
  Weight: 71 kg

DRUGS (4)
  1. TALTZ [Suspect]
     Active Substance: IXEKIZUMAB
     Indication: Psoriasis
     Dosage: 80 MG, OTHER
     Route: 058
     Dates: start: 20231025, end: 20231206
  2. FOSRAVUCONAZOLE L-LYSINE ETHANOLATE [Concomitant]
     Active Substance: FOSRAVUCONAZOLE L-LYSINE ETHANOLATE
  3. RUPAFIN [Concomitant]
     Active Substance: RUPATADINE FUMARATE
  4. HYDROXYZINE PAMOATE [Concomitant]
     Active Substance: HYDROXYZINE PAMOATE

REACTIONS (4)
  - Bladder transitional cell carcinoma stage 0 [Recovered/Resolved]
  - Psoriasis [Recovering/Resolving]
  - Delirium [Unknown]
  - Off label use [Unknown]

NARRATIVE: CASE EVENT DATE: 20231025
